FAERS Safety Report 7088718-6 (Version None)
Quarter: 2010Q4

REPORT INFORMATION
  Report Type: 
  Country: None (occurrence: None)
  Receive Date: 20101108
  Receipt Date: 20101019
  Transmission Date: 20110411
  Serious: No
  Sender: FDA-Public Use
  Company Number: US-BAYER-201039158NA

PATIENT
  Age: 38 Year
  Sex: Female
  Weight: 95 kg

DRUGS (2)
  1. YAZ [Suspect]
     Indication: WEIGHT CONTROL
     Route: 048
     Dates: start: 20070716, end: 20080616
  2. YASMIN [Suspect]
     Indication: WEIGHT CONTROL
     Route: 048
     Dates: start: 20021216, end: 20061222

REACTIONS (3)
  - CHRONIC OBSTRUCTIVE PULMONARY DISEASE [None]
  - DYSPNOEA [None]
  - MENORRHAGIA [None]
